FAERS Safety Report 12119385 (Version 1)
Quarter: 2016Q1

REPORT INFORMATION
  Report Type: Spontaneous
  Country: None (occurrence: None)
  Receive Date: 20160225
  Receipt Date: 20160225
  Transmission Date: 20160526
  Serious: Yes (Other)
  Sender: FDA-Public Use
  Company Number: None

PATIENT
  Age: 25 Year
  Sex: Female
  Weight: 51 kg

DRUGS (1)
  1. GIANVI [Suspect]
     Active Substance: DROSPIRENONE\ETHINYL ESTRADIOL
     Indication: CONTRACEPTION
     Dosage: 1 PILL QD ORAL
     Route: 048

REACTIONS (5)
  - Nausea [None]
  - Abdominal pain [None]
  - Decreased appetite [None]
  - Abdominal distension [None]
  - Product substitution issue [None]

NARRATIVE: CASE EVENT DATE: 20160223
